FAERS Safety Report 9155616 (Version 1)
Quarter: 2013Q1

REPORT INFORMATION
  Report Type: Spontaneous
  Country: US (occurrence: US)
  Receive Date: 20130311
  Receipt Date: 20130311
  Transmission Date: 20140127
  Serious: No
  Sender: FDA-Public Use
  Company Number: US-009507513-1303USA003615

PATIENT
  Sex: Female

DRUGS (5)
  1. BOCEPREVIR [Suspect]
     Indication: HEPATITIS C
     Dosage: UNK
     Dates: start: 20120713
  2. RIBAVIRIN [Suspect]
     Indication: HEPATITIS C
     Dosage: 1000MG, QD
     Dates: start: 20120615
  3. RIBAVIRIN [Suspect]
     Dosage: 600 MG, QD
  4. PEGASYS [Suspect]
     Indication: HEPATITIS C
     Dosage: 180 MICROGRAM, QW, PROCLICK
     Dates: start: 20120615
  5. METHADONE HYDROCHLORIDE [Concomitant]
     Indication: PAIN

REACTIONS (20)
  - Dysuria [Unknown]
  - Chromaturia [Unknown]
  - Fatigue [Unknown]
  - Urinary tract infection [Unknown]
  - Urinary incontinence [Unknown]
  - Dizziness [Unknown]
  - Vomiting [Unknown]
  - Nausea [Unknown]
  - Diarrhoea [Unknown]
  - Dehydration [Unknown]
  - Palpitations [Unknown]
  - White blood cell count decreased [Unknown]
  - Platelet count decreased [Unknown]
  - Asthenia [Unknown]
  - Dyspnoea exertional [Unknown]
  - Palpitations [Unknown]
  - Malaise [Unknown]
  - Fatigue [Unknown]
  - Haemoglobin decreased [Unknown]
  - Anaemia [Unknown]
